FAERS Safety Report 9161648 (Version 1)
Quarter: 2013Q1

REPORT INFORMATION
  Report Type: Spontaneous
  Country: FR (occurrence: FR)
  Receive Date: 20130314
  Receipt Date: 20130314
  Transmission Date: 20140127
  Serious: Yes (Other)
  Sender: FDA-Public Use
  Company Number: FR-AMGEN-FRASP2013016857

PATIENT
  Sex: Female

DRUGS (2)
  1. NEULASTA [Suspect]
     Indication: INFANTILE GENETIC AGRANULOCYTOSIS
     Dosage: UNK UNK, Q2WK
  2. NEUPOGEN [Suspect]
     Indication: INFANTILE GENETIC AGRANULOCYTOSIS
     Dosage: UNK

REACTIONS (4)
  - Ovarian failure [Unknown]
  - Thrombocytopenia [Unknown]
  - Infection [Unknown]
  - Bone pain [Unknown]
